FAERS Safety Report 14430391 (Version 1)
Quarter: 2018Q1

REPORT INFORMATION
  Report Type: Spontaneous
  Country: US (occurrence: US)
  Receive Date: 20180123
  Receipt Date: 20180123
  Transmission Date: 20180509
  Serious: No
  Sender: FDA-Public Use
  Company Number: None

PATIENT
  Sex: Female

DRUGS (2)
  1. LORYNA [Suspect]
     Active Substance: DROSPIRENONE\ETHINYL ESTRADIOL
  2. FENTANYL. [Suspect]
     Active Substance: FENTANYL

REACTIONS (6)
  - Metrorrhagia [None]
  - Muscle spasms [None]
  - Nausea [None]
  - Haemorrhage [None]
  - Headache [None]
  - Vomiting [None]
